FAERS Safety Report 19934507 (Version 2)
Quarter: 2021Q4

REPORT INFORMATION
  Report Type: Spontaneous
  Country: PL (occurrence: PL)
  Receive Date: 20211008
  Receipt Date: 20211122
  Transmission Date: 20220304
  Serious: Yes (Other)
  Sender: FDA-Public Use
  Company Number: PL-NOVARTISPH-NVSC2021PL228647

PATIENT
  Age: 64 Year
  Sex: Male

DRUGS (2)
  1. NILOTINIB [Suspect]
     Active Substance: NILOTINIB
     Indication: Chronic myeloid leukaemia
     Dosage: 800 MG, QD
     Route: 065
     Dates: start: 2016, end: 201702
  2. NILOTINIB [Suspect]
     Active Substance: NILOTINIB
     Dosage: UNK (REDUCED)
     Route: 065

REACTIONS (3)
  - Myocardial ischaemia [Unknown]
  - Peripheral arterial occlusive disease [Unknown]
  - Cardiovascular disorder [Unknown]
